FAERS Safety Report 6209513-3 (Version None)
Quarter: 2009Q2

REPORT INFORMATION
  Report Type: 
  Country: None (occurrence: None)
  Receive Date: 20090601
  Receipt Date: 20090527
  Transmission Date: 20091009
  Serious: Yes (Death)
  Sender: FDA-Public Use
  Company Number: PHHY2009GB20668

PATIENT
  Age: 33 Year
  Weight: 125 kg

DRUGS (4)
  1. OXCARBAZEPINE [Suspect]
     Dosage: UNK
  2. FLONASE [Concomitant]
     Dosage: UNK
  3. LAMOTRIGINE [Concomitant]
     Dosage: UNK
  4. VENTOLIN [Concomitant]
     Dosage: UNK

REACTIONS (1)
  - CARDIOMYOPATHY [None]
